FAERS Safety Report 23296554 (Version 6)
Quarter: 2024Q1

REPORT INFORMATION
  Report Type: Spontaneous
  Country: JP (occurrence: JP)
  Receive Date: 20231214
  Receipt Date: 20240322
  Transmission Date: 20240410
  Serious: Yes (Life-Threatening, Hospitalization, Other)
  Sender: FDA-Public Use
  Company Number: JP-ONO-2023JP030696

PATIENT
  Age: 6 Decade
  Sex: Female

DRUGS (9)
  1. OPDIVO [Suspect]
     Active Substance: NIVOLUMAB
     Indication: Gastric cancer
     Dosage: UNK
     Route: 041
     Dates: start: 20230906, end: 20231129
  2. COVID-19 VACCINE NOS [Suspect]
     Active Substance: COVID-19 VACCINE NOS
     Indication: COVID-19 immunisation
  3. METHYLPREDNISOLONE [Suspect]
     Active Substance: METHYLPREDNISOLONE
     Indication: Myocarditis
     Dosage: 500 MG, Q12H
     Dates: start: 20231211, end: 20231213
  4. PREDONINE [Suspect]
     Active Substance: PREDNISOLONE
     Indication: Myocarditis
     Dates: start: 20231214, end: 20231218
  5. PREDONINE [Suspect]
     Active Substance: PREDNISOLONE
     Dates: start: 20231219, end: 20231222
  6. PREDONINE [Suspect]
     Active Substance: PREDNISOLONE
     Dates: start: 20231223, end: 20231228
  7. PREDONINE [Suspect]
     Active Substance: PREDNISOLONE
     Dosage: 15 MG IN 2 DIVIDED DOSES (10, 5)
     Dates: start: 20231229
  8. TS-1 [Concomitant]
     Active Substance: GIMERACIL\OTERACIL POTASSIUM\TEGAFUR
     Indication: Gastric cancer
     Dates: start: 20230906, end: 20231210
  9. OXALIPLATIN [Concomitant]
     Active Substance: OXALIPLATIN
     Indication: Gastric cancer
     Dates: start: 20230906

REACTIONS (6)
  - Myocarditis [Recovering/Resolving]
  - Anxiety [Recovered/Resolved]
  - Depressed mood [Recovered/Resolved]
  - Nasopharyngitis [Unknown]
  - Viral infection [Unknown]
  - Off label use [Unknown]

NARRATIVE: CASE EVENT DATE: 20231101
